FAERS Safety Report 6291262-7 (Version None)
Quarter: 2009Q3

REPORT INFORMATION
  Report Type: 
  Country: None (occurrence: None)
  Receive Date: 20090728
  Receipt Date: 20090728
  Transmission Date: 20100115
  Serious: No
  Sender: FDA-Public Use
  Company Number: None

PATIENT
  Age: 26 Year
  Sex: Female
  Weight: 52.1637 kg

DRUGS (1)
  1. GEODON [Suspect]
     Indication: AFFECTIVE DISORDER
     Dosage: 60 MG 1X DAY
     Dates: start: 20071201, end: 20080531

REACTIONS (6)
  - APHASIA [None]
  - DYSKINESIA [None]
  - DYSPHEMIA [None]
  - PAIN [None]
  - PARKINSON'S DISEASE [None]
  - SWOLLEN TONGUE [None]
